FAERS Safety Report 9185609 (Version 6)
Quarter: 2014Q1

REPORT INFORMATION
  Report Type: Spontaneous
  Country: US (occurrence: US)
  Receive Date: 20121101
  Receipt Date: 20140221
  Transmission Date: 20141002
  Serious: No
  Sender: FDA-Public Use
  Company Number: US-009507513-1210USA012625

PATIENT
  Sex: Male
  Weight: 72.11 kg

DRUGS (2)
  1. PROPECIA [Suspect]
     Indication: ANDROGENETIC ALOPECIA
     Dosage: 1 MG, QD
     Route: 048
     Dates: start: 20070128, end: 20080731
  2. FINASTERIDE [Suspect]
     Dosage: 5 MG, UNK
     Route: 048
     Dates: start: 200910, end: 20120803

REACTIONS (25)
  - Cognitive disorder [Not Recovered/Not Resolved]
  - Anxiety [Unknown]
  - Infection [Unknown]
  - Pollakiuria [Unknown]
  - Micturition urgency [Unknown]
  - Nocturia [Unknown]
  - Mood swings [Unknown]
  - Fatigue [Unknown]
  - Decreased appetite [Unknown]
  - Temperature intolerance [Unknown]
  - Muscle rigidity [Unknown]
  - Nystagmus [Unknown]
  - Fatigue [Unknown]
  - Full blood count abnormal [Unknown]
  - Haemorrhoids thrombosed [Unknown]
  - Haemorrhoids [Unknown]
  - Prostatomegaly [Unknown]
  - Wrong technique in drug usage process [Unknown]
  - Urinary retention [Unknown]
  - Renal cyst [Unknown]
  - Urethral meatus stenosis [Unknown]
  - Sexual dysfunction [Not Recovered/Not Resolved]
  - Dermatitis [Unknown]
  - Libido decreased [Unknown]
  - Depression [Unknown]
